FAERS Safety Report 4923106-7 (Version None)
Quarter: 2006Q1

REPORT INFORMATION
  Report Type: 
  Country: None (occurrence: None)
  Receive Date: 20060113
  Receipt Date: 20050531
  Transmission Date: 20060701
  Serious: Yes (Hospitalization, Other)
  Sender: FDA-Public Use
  Company Number: HQWYE764203AUG04

PATIENT
  Age: 71 Year
  Sex: Female
  Weight: 62.65 kg

DRUGS (3)
  1. PREMPRO [Suspect]
     Indication: MENOPAUSE
     Dosage: 0.625MG/2.5MG
     Dates: start: 19971001
  2. OGEN [Suspect]
     Dosage: .625 MG
     Dates: start: 19870101
  3. PROVERA [Suspect]
     Dosage: 5 MG
     Dates: start: 19870101, end: 19900421

REACTIONS (1)
  - BREAST CANCER [None]
